FAERS Safety Report 22168474 (Version 1)
Quarter: 2023Q2

REPORT INFORMATION
  Report Type: Other
  Country: LK (occurrence: LK)
  Receive Date: 20230403
  Receipt Date: 20230403
  Transmission Date: 20230721
  Serious: Yes (Death, Other)
  Sender: FDA-Public Use
  Company Number: LK-BoehringerIngelheim-2023-BI-228307

PATIENT
  Age: 21 Year
  Sex: Male

DRUGS (2)
  1. TENECTEPLASE [Suspect]
     Active Substance: TENECTEPLASE
     Indication: Acute myocardial infarction
     Route: 065
  2. ENOXAPARIN [Concomitant]
     Active Substance: ENOXAPARIN
     Indication: Product used for unknown indication
     Route: 058

REACTIONS (2)
  - Ventricular tachycardia [Fatal]
  - Drug ineffective [Unknown]
